FAERS Safety Report 6024500-6 (Version None)
Quarter: 2008Q4

REPORT INFORMATION
  Report Type: 
  Country: None (occurrence: None)
  Receive Date: 20081231
  Receipt Date: 20080917
  Transmission Date: 20090506
  Serious: No
  Sender: FDA-Public Use
  Company Number: US-BRISTOL-MYERS SQUIBB COMPANY-14338446

PATIENT
  Age: 35 Year
  Sex: Female

DRUGS (5)
  1. ORENCIA [Suspect]
     Indication: RHEUMATOID ARTHRITIS
     Dosage: FIRST DOSE OF ORENCIA
     Dates: start: 20080905
  2. RANITIDINE [Concomitant]
  3. IBUPROFEN TABLETS [Concomitant]
  4. HYDROCODONE [Concomitant]
  5. PREDNISONE [Concomitant]

REACTIONS (2)
  - BLOOD PRESSURE DECREASED [None]
  - NAUSEA [None]
